FAERS Safety Report 8222479-X (Version None)
Quarter: 2012Q1

REPORT INFORMATION
  Report Type: 
  Country: None (occurrence: None)
  Receive Date: 20120320
  Receipt Date: 20120312
  Transmission Date: 20120608
  Serious: Yes (Hospitalization)
  Sender: FDA-Public Use
  Company Number: US-BAYER-2011-100750

PATIENT
  Age: 17 Year
  Sex: Female
  Weight: 74.83 kg

DRUGS (9)
  1. ZANTAC [Concomitant]
  2. IBUPROFEN (ADVIL) [Concomitant]
     Indication: HEADACHE
  3. ROLAIDS [Concomitant]
  4. DROSPIRENONE AND ETHINYL ESTRADIOL [Suspect]
     Indication: PREMENSTRUAL SYNDROME
  5. DROSPIRENONE AND ETHINYL ESTRADIOL [Suspect]
     Indication: MENORRHAGIA
  6. FISH OIL [Concomitant]
     Dosage: 2 TABLETS DAILY
  7. YAZ [Suspect]
     Dosage: UNK
     Dates: start: 20101001, end: 20110701
  8. DROSPIRENONE AND ETHINYL ESTRADIOL [Suspect]
     Indication: CONTRACEPTION
     Dosage: UNK
     Dates: start: 20101001, end: 20110701
  9. LOESTRIN 1.5/30-21 [Concomitant]
     Dosage: 20 MCG-1 MG TABLET DAILY
     Dates: start: 20110718

REACTIONS (6)
  - GALLBLADDER DISORDER [None]
  - ABDOMINAL PAIN UPPER [None]
  - PAIN [None]
  - EMOTIONAL DISTRESS [None]
  - ANXIETY [None]
  - INJURY [None]
